FAERS Safety Report 10431151 (Version 3)
Quarter: 2018Q4

REPORT INFORMATION
  Report Type: Spontaneous
  Country: US (occurrence: US)
  Receive Date: 20140904
  Receipt Date: 20181216
  Transmission Date: 20190204
  Serious: Yes (Other)
  Sender: FDA-Public Use
  Company Number: US-TEVA-506824USA

PATIENT
  Age: 18 Year
  Sex: Female
  Weight: 70.37 kg

DRUGS (1)
  1. PARAGARD T 380A [Suspect]
     Active Substance: COPPER
     Indication: CONTRACEPTION
     Route: 015
     Dates: start: 201310

REACTIONS (4)
  - Maternal exposure during pregnancy [Unknown]
  - Menstruation delayed [Not Recovered/Not Resolved]
  - Uterine perforation [Unknown]
  - Pregnancy on contraceptive [Not Recovered/Not Resolved]

NARRATIVE: CASE EVENT DATE: 201408
